FAERS Safety Report 4767835-7 (Version None)
Quarter: 2005Q3

REPORT INFORMATION
  Report Type: 
  Country: None (occurrence: None)
  Receive Date: 20050912
  Receipt Date: 20050830
  Transmission Date: 20060218
  Serious: Yes (Other)
  Sender: FDA-Public Use
  Company Number: 2005123295

PATIENT
  Sex: Female

DRUGS (4)
  1. GEODON [Suspect]
     Indication: ILL-DEFINED DISORDER
     Dosage: 40 MG, ORAL
     Route: 048
  2. TRAZODONE (TRAZODONE) [Concomitant]
  3. WELLBUTRIN [Concomitant]
  4. SSRI (SSRI) [Concomitant]

REACTIONS (3)
  - SINOATRIAL BLOCK [None]
  - SINUS ARRHYTHMIA [None]
  - SYNCOPE [None]
